FAERS Safety Report 5030893-9 (Version None)
Quarter: 2006Q2

REPORT INFORMATION
  Report Type: 
  Country: None (occurrence: None)
  Receive Date: 20060619
  Receipt Date: 20060607
  Transmission Date: 20061013
  Serious: Yes (Hospitalization)
  Sender: FDA-Public Use
  Company Number: AU-2006-012102

PATIENT
  Age: 45 Year
  Sex: Male
  Weight: 78 kg

DRUGS (5)
  1. FLUDARABINE [Suspect]
     Indication: CHRONIC LYMPHOCYTIC LEUKAEMIA
     Dosage: 47.5 MG, CYCLES X 3D, INTRAVENOUS
     Route: 042
     Dates: start: 20060125
  2. CYCLOPHOSPHAMIDE [Suspect]
     Indication: CHRONIC LYMPHOCYTIC LEUKAEMIA
     Dosage: 480 MG, CYCLES X 3D, INTRAVENOUS
     Route: 042
     Dates: start: 20060125
  3. PANADEINE FORTE (CODEINE PHOSPHATE) [Concomitant]
  4. METOCLOPRAMIDE [Concomitant]
  5. CYCLIZINE [Concomitant]

REACTIONS (3)
  - HEADACHE [None]
  - NAUSEA [None]
  - PHOTOPHOBIA [None]
